FAERS Safety Report 6607920-8 (Version None)
Quarter: 2010Q1

REPORT INFORMATION
  Report Type: 
  Country: None (occurrence: None)
  Receive Date: 20100301
  Receipt Date: 20100222
  Transmission Date: 20100710
  Serious: Yes (Death)
  Sender: FDA-Public Use
  Company Number: CHPA2010US03728

PATIENT
  Age: 43 Year
  Sex: Female

DRUGS (3)
  1. DIPHENHYDRAMINE (NCH) [Suspect]
     Dosage: UNK, UNK
  2. KETOPROFEN [Suspect]
     Dosage: UNK, UNK
  3. BUPROPION HCL [Suspect]
     Dosage: UNK, UNK

REACTIONS (1)
  - COMPLETED SUICIDE [None]
